FAERS Safety Report 15672271 (Version 3)
Quarter: 2019Q1

REPORT INFORMATION
  Report Type: Report from Study
  Country: US (occurrence: US)
  Receive Date: 20181129
  Receipt Date: 20190319
  Transmission Date: 20190417
  Serious: Yes (Hospitalization)
  Sender: FDA-Public Use
  Company Number: US-TESARO-US-2017TSO04497

PATIENT
  Sex: Female

DRUGS (4)
  1. ZEJULA [Suspect]
     Active Substance: NIRAPARIB
     Indication: OVARIAN CANCER
     Dosage: 200 MG, QD
     Route: 048
     Dates: start: 20171102
  2. ZEJULA [Suspect]
     Active Substance: NIRAPARIB
     Dosage: 100 MG, ALTERNATING WITH 200 MG QD
     Route: 048
     Dates: start: 201712
  3. ZEJULA [Suspect]
     Active Substance: NIRAPARIB
     Dosage: 200 MG, ALTERNATING WITH 100 MG
     Route: 048
  4. ZEJULA [Suspect]
     Active Substance: NIRAPARIB
     Dosage: 100 MG, QD
     Route: 048
     Dates: start: 201711

REACTIONS (16)
  - Insomnia [Unknown]
  - Constipation [Not Recovered/Not Resolved]
  - Inappropriate schedule of product administration [Not Recovered/Not Resolved]
  - Cough [Unknown]
  - Emotional distress [Unknown]
  - Nasopharyngitis [Unknown]
  - Product dose omission [Not Recovered/Not Resolved]
  - Blood pressure fluctuation [Recovering/Resolving]
  - Appetite disorder [Unknown]
  - Nausea [Recovered/Resolved]
  - Intentional dose omission [Not Recovered/Not Resolved]
  - Dehydration [Recovered/Resolved]
  - Leukopenia [Not Recovered/Not Resolved]
  - Fatigue [Recovered/Resolved]
  - Blood count abnormal [Not Recovered/Not Resolved]
  - Weight decreased [Not Recovered/Not Resolved]
